FAERS Safety Report 10067837 (Version 1)
Quarter: 2014Q2

REPORT INFORMATION
  Report Type: Spontaneous
  Country: US (occurrence: None)
  Receive Date: 20140407
  Receipt Date: 20140407
  Transmission Date: 20141212
  Serious: Yes (Other)
  Sender: FDA-Public Use
  Company Number: 2014AP002492

PATIENT
  Age: 63 Year
  Sex: Female

DRUGS (1)
  1. CLOPIDOGREL [Suspect]

REACTIONS (3)
  - Vena cava thrombosis [None]
  - Madarosis [None]
  - Product quality issue [None]
